FAERS Safety Report 25080085 (Version 4)
Quarter: 2025Q3

REPORT INFORMATION
  Report Type: Report from Study
  Country: EU (occurrence: EU)
  Receive Date: 20250314
  Receipt Date: 20250728
  Transmission Date: 20251021
  Serious: Yes (Life-Threatening, Hospitalization)
  Sender: EISAI
  Company Number: EU-Eisai-EC-2025-185881

PATIENT
  Age: 52 Year
  Sex: Female
  Weight: 69 kg

DRUGS (12)
  1. ERIBULIN [Suspect]
     Active Substance: ERIBULIN
     Indication: Breast cancer metastatic
     Dates: start: 20241217, end: 20241217
  2. ERIBULIN [Suspect]
     Active Substance: ERIBULIN
     Dates: start: 20250109
  3. TRASTUZUMAB [Suspect]
     Active Substance: TRASTUZUMAB
     Indication: Breast cancer metastatic
     Dates: start: 20240108, end: 2024
  4. TRASTUZUMAB [Suspect]
     Active Substance: TRASTUZUMAB
     Dates: start: 20241217, end: 20241217
  5. TRASTUZUMAB [Suspect]
     Active Substance: TRASTUZUMAB
     Dates: start: 202412, end: 20241226
  6. TRASTUZUMAB [Suspect]
     Active Substance: TRASTUZUMAB
     Dates: start: 20250109
  7. LEVOTHYROXINE [Concomitant]
     Active Substance: LEVOTHYROXINE
  8. BISOPROLOL [Concomitant]
     Active Substance: BISOPROLOL
  9. ENALAPRIL [Concomitant]
     Active Substance: ENALAPRIL
  10. AMOXICILLIN\CLAVULANIC ACID [Concomitant]
     Active Substance: AMOXICILLIN\CLAVULANIC ACID
     Dates: start: 20250325, end: 20250330
  11. ATARAX [Concomitant]
     Active Substance: HYDROXYZINE HYDROCHLORIDE
     Dates: start: 20241208, end: 20250530
  12. PREDNISONE [Concomitant]
     Active Substance: PREDNISONE
     Dates: start: 20241208, end: 20250530

REACTIONS (1)
  - Neutrophil count decreased [Recovered/Resolved]

NARRATIVE: CASE EVENT DATE: 20241226
